FAERS Safety Report 16195205 (Version 1)
Quarter: 2019Q2

REPORT INFORMATION
  Report Type: Spontaneous
  Country: US (occurrence: US)
  Receive Date: 20190415
  Receipt Date: 20190415
  Transmission Date: 20190711
  Serious: Yes (Death, Hospitalization, Other)
  Sender: FDA-Public Use
  Company Number: US-CIPLA LTD.-2019US01881

PATIENT

DRUGS (16)
  1. 5 FU [Suspect]
     Active Substance: FLUOROURACIL
     Indication: RECTAL CANCER
     Dosage: UNK, FOLFOX
     Route: 065
  2. 5 FU [Suspect]
     Active Substance: FLUOROURACIL
     Dosage: 1600 MILLIGRAM/SQ. METER, LAST CYCLE, 11 CYCLES, ZFOLFIRI
     Route: 065
  3. LEUCOVORIN                         /00566701/ [Suspect]
     Active Substance: LEUCOVORIN
     Indication: RECTAL CANCER
     Dosage: UNK, FOLFOX
     Route: 065
  4. ZALTRAP [Suspect]
     Active Substance: ZIV-AFLIBERCEPT
     Indication: METASTASIS
     Dosage: 4 MILLIGRAM/KILOGRAM, LAST CYCLE, 11 CYCLES, ZFOLFIRI, 197 DAYS
     Route: 065
  5. 5 FU [Suspect]
     Active Substance: FLUOROURACIL
     Indication: METASTASIS
     Dosage: UNK, FOLFIRI
     Route: 065
  6. LEUCOVORIN                         /00566701/ [Suspect]
     Active Substance: LEUCOVORIN
     Indication: METASTASIS
     Dosage: UNK, FOLFIRI
     Route: 065
  7. LEUCOVORIN                         /00566701/ [Suspect]
     Active Substance: LEUCOVORIN
     Dosage: UNK, ZFOLFIRI
     Route: 065
  8. OXALIPLATIN. [Suspect]
     Active Substance: OXALIPLATIN
     Indication: RECTAL CANCER
     Dosage: UNK, FOLFOX
     Route: 065
  9. BEVACIZUMAB. [Suspect]
     Active Substance: BEVACIZUMAB
     Indication: RECTAL CANCER
     Dosage: UNK
     Route: 065
  10. IRINOTECAN [Suspect]
     Active Substance: IRINOTECAN
     Indication: METASTASIS
     Dosage: 140 MILLIGRAM/SQ. METER, CYCLE 1, ZFOLFIRI, 11 CYCLES
     Route: 065
  11. IRINOTECAN [Suspect]
     Active Substance: IRINOTECAN
     Dosage: 120 MILLIGRAM/SQ. METER, LAST CYCLE, 11 CYCLES, ZFOLFIRI
     Route: 065
  12. ZALTRAP [Suspect]
     Active Substance: ZIV-AFLIBERCEPT
     Indication: RECTAL CANCER
     Dosage: 4 MILLIGRAM/KILOGRAM, CYCLE 1, 11 CYCLES, ZFOLFIRI
     Route: 065
  13. IRINOTECAN [Suspect]
     Active Substance: IRINOTECAN
     Indication: RECTAL CANCER
     Dosage: UNK, FOLFIRI
     Route: 065
  14. BEVACIZUMAB. [Suspect]
     Active Substance: BEVACIZUMAB
     Indication: METASTASIS
  15. 5 FU [Suspect]
     Active Substance: FLUOROURACIL
     Dosage: 1600 MILLIGRAM/SQ. METER, CYCLE 1, 11 CYCLES, ZFOLFIRI
     Route: 065
  16. OXALIPLATIN. [Suspect]
     Active Substance: OXALIPLATIN
     Indication: METASTASIS

REACTIONS (4)
  - Septic shock [Unknown]
  - Death [Fatal]
  - Neutropenia [Unknown]
  - Malignant neoplasm progression [Unknown]
